APPROVED DRUG PRODUCT: DIASONE SODIUM
Active Ingredient: SULFOXONE SODIUM
Strength: 165MG
Dosage Form/Route: TABLET, DELAYED RELEASE;ORAL
Application: N006044 | Product #003
Applicant: ABBVIE INC
Approved: Approved Prior to Jan 1, 1982 | RLD: No | RS: No | Type: DISCN